FAERS Safety Report 19565069 (Version 2)
Quarter: 2021Q3

REPORT INFORMATION
  Report Type: Spontaneous
  Country: DE (occurrence: DE)
  Receive Date: 20210716
  Receipt Date: 20210728
  Transmission Date: 20211014
  Serious: Yes (Other)
  Sender: FDA-Public Use
  Company Number: DE-PFIZER INC-2021818085

PATIENT
  Age: 30 Year
  Sex: Female
  Weight: 73 kg

DRUGS (1)
  1. CYTOTEC [Suspect]
     Active Substance: MISOPROSTOL
     Indication: LABOUR INDUCTION
     Route: 048
     Dates: start: 20210322, end: 20210322

REACTIONS (7)
  - Pyrexia [Recovered/Resolved]
  - Vulvovaginal injury [Recovered/Resolved]
  - Uterine tachysystole [Recovered/Resolved]
  - Perineal injury [Recovered/Resolved]
  - Urinary tract infection [Recovered/Resolved]
  - Uterine inflammation [Recovered/Resolved]
  - Off label use [Unknown]

NARRATIVE: CASE EVENT DATE: 20210322
